FAERS Safety Report 5430319-7 (Version None)
Quarter: 2007Q3

REPORT INFORMATION
  Report Type: 
  Country: None (occurrence: None)
  Receive Date: 20070830
  Receipt Date: 20070820
  Transmission Date: 20080115
  Serious: Yes (Hospitalization)
  Sender: FDA-Public Use
  Company Number: PHHO2005US15574

PATIENT
  Age: 61 Year
  Sex: Female
  Weight: 95.7 kg

DRUGS (20)
  1. ZOLEDRONIC ACID [Suspect]
     Indication: METASTASES TO BONE
     Dosage: UNK, NO TREATMENT
  2. FEMARA [Suspect]
     Indication: BREAST CANCER
     Dosage: 2.5 MG, QD
     Route: 048
     Dates: start: 20030606
  3. MECLIZINE [Concomitant]
     Indication: DIZZINESS
  4. XANAX [Concomitant]
     Indication: DEPRESSION
  5. NEURONTIN [Concomitant]
  6. ZOLOFT [Concomitant]
     Indication: DEPRESSION
  7. VITAMIN E [Concomitant]
     Indication: HOT FLUSH
  8. BEXTRA [Concomitant]
     Indication: MUSCLE SPASMS
  9. ALBUTEROL [Concomitant]
     Indication: COUGH
     Dosage: 2 PUFFS, PRN
  10. LOPID [Concomitant]
     Indication: BLOOD TRIGLYCERIDES INCREASED
  11. VICODIN [Concomitant]
     Indication: PAIN
  12. DIOVAN [Suspect]
     Dosage: 80/12.5 MG, QD
     Route: 048
     Dates: start: 20050801, end: 20050818
  13. ADVAIR DISKUS 100/50 [Concomitant]
     Indication: COUGH
  14. CIPRO [Suspect]
     Indication: URINARY TRACT INFECTION
     Dosage: UNK, UNK
     Dates: start: 20050815, end: 20050818
  15. MACROBID [Suspect]
     Dates: start: 20050821, end: 20050822
  16. VITAMIN D [Concomitant]
  17. CALCIUM [Concomitant]
  18. CEFAZOLIN [Concomitant]
  19. ARIMIDEX [Concomitant]
  20. ESIDRIX [Suspect]
     Dates: start: 20050801, end: 20050818

REACTIONS (19)
  - ABDOMINAL PAIN [None]
  - ABDOMINAL PAIN UPPER [None]
  - BLOOD AMYLASE INCREASED [None]
  - BLOOD CREATININE INCREASED [None]
  - BLOOD GLUCOSE INCREASED [None]
  - DEHYDRATION [None]
  - DIARRHOEA [None]
  - DRUG HYPERSENSITIVITY [None]
  - HYPOVOLAEMIA [None]
  - LIPASE INCREASED [None]
  - NAUSEA [None]
  - PANCREATITIS [None]
  - RASH [None]
  - RENAL CYST [None]
  - RENAL FAILURE [None]
  - SYNCOPE [None]
  - URINARY TRACT INFECTION STAPHYLOCOCCAL [None]
  - URTICARIA [None]
  - VOMITING [None]
